FAERS Safety Report 5043167-7 (Version None)
Quarter: 2006Q3

REPORT INFORMATION
  Report Type: 
  Country: None (occurrence: None)
  Receive Date: 20060703
  Receipt Date: 20060703
  Transmission Date: 20061208
  Serious: No
  Sender: FDA-Public Use
  Company Number: None

PATIENT
  Sex: Male
  Weight: 189.8 kg

DRUGS (8)
  1. FENOFIBRATE [Suspect]
     Indication: HYPERTRIGLYCERIDAEMIA
     Dosage: 48 MG Q DAY PO BUCCAL
     Route: 048
     Dates: start: 20060207, end: 20060424
  2. CYANOCOBALAMIN [Concomitant]
  3. FOLIC ACID [Concomitant]
  4. LABETALOL HCL [Concomitant]
  5. SYNTHROID [Concomitant]
  6. LISINOPRIL [Concomitant]
  7. METFORMIN HYDROCHLORIDE [Concomitant]
  8. OMEPRAZOLE [Concomitant]

REACTIONS (4)
  - FLUSHING [None]
  - HOT FLUSH [None]
  - MENOPAUSAL SYMPTOMS [None]
  - SWELLING [None]
